FAERS Safety Report 9087213 (Version 2)
Quarter: 2013Q1

REPORT INFORMATION
  Report Type: Spontaneous
  Country: CA (occurrence: CA)
  Receive Date: 20130201
  Receipt Date: 20130312
  Transmission Date: 20140127
  Serious: Yes (Hospitalization, Other)
  Sender: FDA-Public Use
  Company Number: PHHY2013CA009269

PATIENT
  Sex: Male

DRUGS (2)
  1. TASIGNA [Suspect]
     Indication: GASTROINTESTINAL STROMAL TUMOUR
     Dosage: 400 MG, BID
     Dates: start: 201107
  2. CRESTOR [Concomitant]

REACTIONS (6)
  - Diverticulitis [Unknown]
  - Intestinal obstruction [Unknown]
  - Hypotension [Unknown]
  - Renal impairment [Unknown]
  - Gastrointestinal disorder [Unknown]
  - Gastrointestinal haemorrhage [Unknown]
